FAERS Safety Report 7627332-8 (Version None)
Quarter: 2011Q3

REPORT INFORMATION
  Report Type: 
  Country: None (occurrence: None)
  Receive Date: 20110721
  Receipt Date: 20110705
  Transmission Date: 20111222
  Serious: Yes (Hospitalization)
  Sender: FDA-Public Use
  Company Number: US-BAYER-2011-058380

PATIENT
  Age: 65 Year
  Sex: Female

DRUGS (9)
  1. DOBUTAMINE HCL [Suspect]
  2. KETOROLAC TROMETHAMINE [Suspect]
     Indication: RHEUMATOID ARTHRITIS
  3. ATENOLOL [Suspect]
  4. COUMADIN [Suspect]
  5. DOPAMINE HCL [Suspect]
  6. CEFUROXIME [Suspect]
  7. MIDAZOLAM HCL [Suspect]
  8. FAMOTIDINE [Suspect]
  9. ACETYLSALICYLIC ACID SRT [Suspect]

REACTIONS (6)
  - RENAL FAILURE ACUTE [None]
  - PROTEINURIA [None]
  - PYURIA [None]
  - HAEMATURIA [None]
  - TUBULOINTERSTITIAL NEPHRITIS [None]
  - TYPE III IMMUNE COMPLEX MEDIATED REACTION [None]
